FAERS Safety Report 7311897-X (Version None)
Quarter: 2011Q1

REPORT INFORMATION
  Report Type: 
  Country: None (occurrence: None)
  Receive Date: 20110224
  Receipt Date: 20110221
  Transmission Date: 20110831
  Serious: Yes (Death, Hospitalization, Other)
  Sender: FDA-Public Use
  Company Number: US-B.I. PHARMACEUTICALS,INC./RIDGEFIELD-2011-BP-01546BP

PATIENT
  Age: 83 Year
  Sex: Female
  Weight: 61.23 kg

DRUGS (6)
  1. PRADAXA [Suspect]
     Indication: ATRIAL FIBRILLATION
     Dosage: 300 MG
     Route: 048
     Dates: start: 20101201, end: 20101217
  2. ADVAIR DISKUS 100/50 [Concomitant]
     Indication: CHRONIC OBSTRUCTIVE PULMONARY DISEASE
  3. ALBUTEROL [Concomitant]
     Indication: CHRONIC OBSTRUCTIVE PULMONARY DISEASE
  4. NABUMETONE [Concomitant]
  5. FUROSEMIDE [Concomitant]
  6. DILTIAZEM CD [Concomitant]

REACTIONS (3)
  - RESPIRATORY FAILURE [None]
  - FALL [None]
  - RECTAL HAEMORRHAGE [None]
